FAERS Safety Report 24331692 (Version 1)
Quarter: 2024Q3

REPORT INFORMATION
  Report Type: Spontaneous
  Country: GE (occurrence: GE)
  Receive Date: 20240918
  Receipt Date: 20240918
  Transmission Date: 20241017
  Serious: Yes (Other)
  Sender: PANACEA BIOTEC
  Company Number: GE-PBT-009677

PATIENT
  Age: 38 Year
  Sex: Male

DRUGS (1)
  1. TACROLIMUS [Suspect]
     Active Substance: TACROLIMUS
     Indication: Prophylaxis against transplant rejection
     Route: 065

REACTIONS (4)
  - Diabetic ketoacidosis [Unknown]
  - Diabetes mellitus [Unknown]
  - Drug level above therapeutic [Unknown]
  - Cell death [Unknown]
